FAERS Safety Report 19645891 (Version 1)
Quarter: 2021Q3

REPORT INFORMATION
  Report Type: Spontaneous
  Country: US (occurrence: US)
  Receive Date: 20210730
  Receipt Date: 20210730
  Transmission Date: 20211014
  Serious: Yes (Other)
  Sender: FDA-Public Use
  Company Number: None

PATIENT
  Age: 86 Year
  Sex: Female
  Weight: 76.2 kg

DRUGS (8)
  1. WARFARIN [Concomitant]
     Active Substance: WARFARIN
  2. TUMERIC [Concomitant]
     Active Substance: HERBALS\TURMERIC
  3. CHLORHEXIDINE GLUCON LIQ 0.12% [Suspect]
     Active Substance: CHLORHEXIDINE GLUCONATE
     Indication: GINGIVAL SWELLING
     Dosage: ?          QUANTITY:MEASUREMENT ON CAP;?
     Route: 048
     Dates: start: 20210220, end: 20210310
  4. TELMISARTIN [Concomitant]
  5. NORVASC [Concomitant]
     Active Substance: AMLODIPINE BESYLATE
  6. MULTIVITAMIN [Concomitant]
     Active Substance: VITAMINS
  7. BIOTIN [Concomitant]
     Active Substance: BIOTIN
  8. GLUCOSAMINE CHONDROITIN [Concomitant]
     Active Substance: CHONDROITIN SULFATE (BOVINE)\GLUCOSAMINE HYDROCHLORIDE

REACTIONS (1)
  - Ageusia [None]
